FAERS Safety Report 7600236-2 (Version None)
Quarter: 2011Q3

REPORT INFORMATION
  Report Type: 
  Country: None (occurrence: None)
  Receive Date: 20110711
  Receipt Date: 20110629
  Transmission Date: 20111222
  Serious: Yes (Hospitalization, Other)
  Sender: FDA-Public Use
  Company Number: US-BAYER-201039682NA

PATIENT
  Age: 16 Year
  Sex: Female
  Weight: 89.796 kg

DRUGS (3)
  1. YASMIN [Suspect]
     Indication: PRODUCT USED FOR UNKNOWN INDICATION
  2. DROSPIRENONE AND ETHINYL ESTRADIOL [Suspect]
     Indication: PRODUCT USED FOR UNKNOWN INDICATION
     Dosage: UNK
     Route: 048
     Dates: start: 20090701
  3. PANTOPRAZOLE [Concomitant]
     Indication: GASTROOESOPHAGEAL REFLUX DISEASE
     Dosage: UNK
     Dates: start: 20080101

REACTIONS (4)
  - CHOLECYSTITIS CHRONIC [None]
  - CHOLELITHIASIS [None]
  - PAIN [None]
  - GALLBLADDER INJURY [None]
